FAERS Safety Report 10152204 (Version 1)
Quarter: 2014Q2

REPORT INFORMATION
  Report Type: Spontaneous
  Country: US (occurrence: None)
  Receive Date: 20140502
  Receipt Date: 20140502
  Transmission Date: 20141212
  Serious: Yes (Life-Threatening, Disabling)
  Sender: FDA-Public Use
  Company Number: None

PATIENT
  Age: 63 Year
  Sex: Female

DRUGS (2)
  1. MEBENDAZOLE [Suspect]
     Indication: INFECTION PARASITIC
     Dosage: 2 PILLS
     Route: 048
     Dates: start: 20140426, end: 20140427
  2. MEBENDAZOLE [Suspect]
     Dosage: 2 PILLS
     Route: 048
     Dates: start: 20140426, end: 20140427

REACTIONS (4)
  - Vomiting [None]
  - Flatulence [None]
  - Drug ineffective [None]
  - Product counterfeit [None]
